FAERS Safety Report 8868473 (Version 2)
Quarter: 2013Q3

REPORT INFORMATION
  Report Type: Spontaneous
  Country: US (occurrence: US)
  Receive Date: 20121025
  Receipt Date: 20130930
  Transmission Date: 20140515
  Serious: No
  Sender: FDA-Public Use
  Company Number: US-AMGEN-USASP2012019687

PATIENT
  Age: 56 Year
  Sex: Female
  Weight: 60.32 kg

DRUGS (11)
  1. ENBREL [Suspect]
     Indication: PSORIATIC ARTHROPATHY
     Dosage: 50 MG, QWK
     Route: 058
     Dates: start: 20111214
  2. HUMIRA [Concomitant]
     Indication: PSORIATIC ARTHROPATHY
     Dosage: 40 MG 0.8, UNK
  3. COZAAR [Concomitant]
     Dosage: 50 MG, UNK
  4. ATENOLOL [Concomitant]
     Dosage: 25 MG, UNK
  5. PROZAC [Concomitant]
     Dosage: 10 MG, UNK
  6. PREVACID [Concomitant]
     Dosage: 15 MG, UNK
  7. CLARITIN                           /00413701/ [Concomitant]
     Dosage: 10 MG, UNK
  8. CALCIUM [Concomitant]
     Dosage: 500 UNK, UNK
  9. MULTIVITAMIN                       /07504101/ [Concomitant]
     Dosage: UNK
  10. ASPIRINA ADULTOS [Concomitant]
     Dosage: 81 MG, UNK
  11. LEVOXYL [Concomitant]
     Dosage: 75 MUG, UNK

REACTIONS (2)
  - Arthralgia [Unknown]
  - Drug ineffective [Unknown]
